FAERS Safety Report 5901616-3 (Version None)
Quarter: 2008Q3

REPORT INFORMATION
  Report Type: 
  Country: None (occurrence: None)
  Receive Date: 20080926
  Receipt Date: 20080926
  Transmission Date: 20090109
  Serious: Yes (Hospitalization)
  Sender: FDA-Public Use
  Company Number: None

PATIENT
  Age: 58 Year
  Sex: Female
  Weight: 74.3899 kg

DRUGS (1)
  1. LYRICA [Suspect]
     Indication: DIABETIC NEUROPATHY
     Dosage: 100 MG 3 TIMES A DAY PO
     Route: 048
     Dates: start: 20080805, end: 20080810

REACTIONS (1)
  - OEDEMA [None]
